FAERS Safety Report 10675704 (Version 1)
Quarter: 2014Q4

REPORT INFORMATION
  Report Type: Spontaneous
  Country: US (occurrence: US)
  Receive Date: 20141224
  Receipt Date: 20141224
  Transmission Date: 20150529
  Serious: No
  Sender: FDA-Public Use
  Company Number: US-ACORDA-ACO_101714_2014

PATIENT
  Sex: Female

DRUGS (2)
  1. INDERAL LA [Suspect]
     Active Substance: PROPRANOLOL HYDROCHLORIDE
     Indication: MIGRAINE
     Dosage: 80 MG, UNK
     Route: 048
     Dates: start: 201311
  2. ZANAFLEX [Suspect]
     Active Substance: TIZANIDINE HYDROCHLORIDE
     Indication: MIGRAINE
     Dosage: UNK
     Dates: start: 201311

REACTIONS (3)
  - Benzodiazepine drug level [Unknown]
  - Product use issue [Unknown]
  - Drug screen positive [Unknown]

NARRATIVE: CASE EVENT DATE: 201311
